FAERS Safety Report 8317882-3 (Version None)
Quarter: 2012Q2

REPORT INFORMATION
  Report Type: 
  Country: None (occurrence: None)
  Receive Date: 20120427
  Receipt Date: 20110613
  Transmission Date: 20120825
  Serious: No
  Sender: FDA-Public Use
  Company Number: US-MYLANLABS-2011S1012392

PATIENT

DRUGS (1)
  1. METHIMAZOLE [Suspect]
     Route: 048

REACTIONS (1)
  - AGEUSIA [None]
